FAERS Safety Report 22122367 (Version 1)
Quarter: 2023Q1

REPORT INFORMATION
  Report Type: Spontaneous
  Country: US (occurrence: US)
  Receive Date: 20230321
  Receipt Date: 20230321
  Transmission Date: 20230418
  Serious: No
  Sender: FDA-Public Use
  Company Number: US-ALLERGAN-2214912US

PATIENT
  Sex: Female

DRUGS (2)
  1. TIMOLOL [Suspect]
     Active Substance: TIMOLOL
     Indication: Product used for unknown indication
     Dosage: UNK
  2. DORZOLAMIDA [DORZOLAMIDE] [Concomitant]
     Indication: Product used for unknown indication

REACTIONS (1)
  - Vision blurred [Unknown]
